FAERS Safety Report 4821194-X (Version None)
Quarter: 2005Q4

REPORT INFORMATION
  Report Type: 
  Country: None (occurrence: None)
  Receive Date: 20051103
  Receipt Date: 20051026
  Transmission Date: 20060501
  Serious: Yes (Hospitalization, Other)
  Sender: FDA-Public Use
  Company Number: 2005137431

PATIENT
  Age: 75 Year
  Sex: Female
  Weight: 86.1834 kg

DRUGS (7)
  1. LIPITOR [Suspect]
     Indication: HYPERLIPIDAEMIA
     Dosage: 20 MG (1 IN 1 D), ORAL
     Route: 048
     Dates: start: 20040615, end: 20040101
  2. ALL OTHER THERAPEUTIC PRODUCTS (ALL OTHER THERAPEUTIC PRODUCTS) [Suspect]
     Indication: SLEEP DISORDER
     Dates: start: 20050101
  3. ZANTAC [Concomitant]
  4. INDERAL LA [Concomitant]
  5. POTASSIUM CHLORIDE [Concomitant]
  6. ZELNORM [Concomitant]
  7. LORTAB [Concomitant]

REACTIONS (16)
  - ABDOMINAL PAIN UPPER [None]
  - ASTHENIA [None]
  - DIFFICULTY IN WALKING [None]
  - DRUG HYPERSENSITIVITY [None]
  - DYSSTASIA [None]
  - EATING DISORDER [None]
  - FALL [None]
  - HYPOKINESIA [None]
  - INSOMNIA [None]
  - MUSCLE ATROPHY [None]
  - MYALGIA [None]
  - PAIN IN EXTREMITY [None]
  - PAROSMIA [None]
  - SCREAMING [None]
  - VOMITING [None]
  - WEIGHT DECREASED [None]
